FAERS Safety Report 17223721 (Version 1)
Quarter: 2020Q1

REPORT INFORMATION
  Report Type: Spontaneous
  Country: PT (occurrence: PT)
  Receive Date: 20200102
  Receipt Date: 20200102
  Transmission Date: 20200409
  Serious: Yes (Other)
  Sender: FDA-Public Use
  Company Number: PT-ROCHE-2505975

PATIENT
  Age: 53 Year
  Sex: Female

DRUGS (1)
  1. ROACTEMRA [Suspect]
     Active Substance: TOCILIZUMAB
     Indication: RHEUMATOID ARTHRITIS
     Route: 058
     Dates: start: 20180627, end: 20191028

REACTIONS (4)
  - Odynophagia [Unknown]
  - Nasal discomfort [Recovered/Resolved]
  - Gingival disorder [Unknown]
  - Mouth ulceration [Unknown]
